FAERS Safety Report 10632042 (Version 1)
Quarter: 2014Q4

REPORT INFORMATION
  Report Type: Spontaneous
  Country: US (occurrence: US)
  Receive Date: 20141205
  Receipt Date: 20141205
  Transmission Date: 20150529
  Serious: No
  Sender: FDA-Public Use
  Company Number: US-BRISTOL-MYERS SQUIBB COMPANY-21554514

PATIENT
  Age: 67 Year
  Sex: Male
  Weight: 99.77 kg

DRUGS (15)
  1. FLOMAX [Concomitant]
     Active Substance: TAMSULOSIN HYDROCHLORIDE
  2. TRAZODONE HYDROCHLORIDE. [Concomitant]
     Active Substance: TRAZODONE HYDROCHLORIDE
  3. PLAVIX [Concomitant]
     Active Substance: CLOPIDOGREL BISULFATE
  4. OSTEO BI-FLEX [Concomitant]
     Active Substance: CHONDROITIN SULFATE A\GLUCOSAMINE
  5. METOPROLOL [Concomitant]
     Active Substance: METOPROLOL
  6. METFORMIN HCL [Concomitant]
     Active Substance: METFORMIN HYDROCHLORIDE
  7. CHLORTALIDONE [Concomitant]
     Active Substance: CHLORTHALIDONE
     Indication: BLOOD PRESSURE
  8. IRON [Concomitant]
     Active Substance: IRON
  9. BYETTA [Suspect]
     Active Substance: EXENATIDE
     Indication: TYPE 2 DIABETES MELLITUS
     Dosage: ONGOING?INJECTION?INITIALLY 5 MCG?INCREASED TO 10MCG
     Route: 058
  10. LISINOPRIL. [Concomitant]
     Active Substance: LISINOPRIL
  11. VITAMIN C [Concomitant]
     Active Substance: ASCORBIC ACID
  12. HYDRALAZINE [Concomitant]
     Active Substance: HYDRALAZINE HYDROCHLORIDE
  13. FISH OIL [Concomitant]
     Active Substance: FISH OIL
  14. ASPIRIN. [Concomitant]
     Active Substance: ASPIRIN
  15. CRESTOR [Concomitant]
     Active Substance: ROSUVASTATIN CALCIUM

REACTIONS (3)
  - Nausea [Not Recovered/Not Resolved]
  - Abdominal pain upper [Not Recovered/Not Resolved]
  - Weight decreased [Unknown]
